FAERS Safety Report 15767777 (Version 1)
Quarter: 2018Q4

REPORT INFORMATION
  Report Type: Spontaneous
  Country: FR (occurrence: FR)
  Receive Date: 20181227
  Receipt Date: 20181227
  Transmission Date: 20190205
  Serious: Yes (Hospitalization)
  Sender: FDA-Public Use
  Company Number: FR-MYLANLABS-2018M1095939

PATIENT
  Age: 61 Year
  Sex: Male
  Weight: 95 kg

DRUGS (2)
  1. ACICLOVIR MYLAN (ACICLOVIR) [Suspect]
     Active Substance: ACYCLOVIR
     Indication: ENCEPHALITIS
     Dosage: 900 MILLIGRAM, Q8H
     Route: 041
     Dates: start: 20180604, end: 20180605
  2. XENETIX [Interacting]
     Active Substance: IOBITRIDOL
     Indication: COMPUTERISED TOMOGRAM HEAD
     Dosage: 80 MILLILITER, TOTAL
     Route: 042
     Dates: start: 20180603

REACTIONS (2)
  - Drug interaction [Unknown]
  - Acute kidney injury [Recovering/Resolving]

NARRATIVE: CASE EVENT DATE: 20180605
